FAERS Safety Report 8867734 (Version 1)
Quarter: 2012Q4

REPORT INFORMATION
  Report Type: 
  Country: US (occurrence: US)
  Receive Date: 20121025
  Receipt Date: 20121025
  Transmission Date: 20130627
  Serious: No
  Sender: FDA-Public Use
  Company Number: US-AMGEN-USASP2012018126

PATIENT
  Age: 63 Year
  Sex: Female

DRUGS (10)
  1. ENBREL [Suspect]
     Indication: PRODUCT USED FOR UNKNOWN INDICATION
     Dosage: 50 mg, qwk
  2. METFORMIN [Concomitant]
     Dosage: 500 mg, UNK
  3. SIMVASTATIN [Concomitant]
     Dosage: 80 mg, UNK
  4. ENALAPRIL [Concomitant]
     Dosage: 20 mg, UNK
  5. FUROSEMIDE [Concomitant]
     Dosage: 20 mg, UNK
  6. DIOVAN [Concomitant]
     Dosage: 320 mg, UNK
  7. HUMIRA [Concomitant]
     Dosage: 40 mg, UNK
  8. ASA [Concomitant]
  9. POTASSIUM [Concomitant]
     Dosage: 75 mg, UNK
  10. TEKTURNA [Concomitant]
     Dosage: 150 mg, UNK

REACTIONS (1)
  - Drug ineffective [Unknown]
